FAERS Safety Report 7406586-7 (Version None)
Quarter: 2011Q2

REPORT INFORMATION
  Report Type: 
  Country: None (occurrence: None)
  Receive Date: 20110411
  Receipt Date: 20110407
  Transmission Date: 20111010
  Serious: Yes (Death)
  Sender: FDA-Public Use
  Company Number: US-ASTRAZENECA-2011SE08524

PATIENT
  Age: 23908 Day
  Sex: Male
  Weight: 95.3 kg

DRUGS (3)
  1. NITROGLYCERIN [Concomitant]
  2. PLAVIX [Concomitant]
  3. CRESTOR [Suspect]
     Indication: BLOOD CHOLESTEROL INCREASED
     Dosage: DAILY
     Route: 048

REACTIONS (2)
  - CARDIAC FAILURE [None]
  - ARTERIAL DISORDER [None]
